FAERS Safety Report 18922570 (Version 1)
Quarter: 2021Q1

REPORT INFORMATION
  Report Type: Spontaneous
  Country: US (occurrence: US)
  Receive Date: 20210222
  Receipt Date: 20210222
  Transmission Date: 20210420
  Serious: No
  Sender: FDA-Public Use
  Company Number: None

PATIENT
  Age: 55 Year
  Sex: Male
  Weight: 98.88 kg

DRUGS (1)
  1. ASENAPINE (GENERIC) 5 MG [Suspect]
     Active Substance: ASENAPINE
     Indication: BIPOLAR II DISORDER
     Dosage: ?          OTHER FREQUENCY:QHS ;?
     Route: 060
     Dates: start: 20210202

REACTIONS (10)
  - Restlessness [None]
  - Middle insomnia [None]
  - Depression [None]
  - Fatigue [None]
  - Anxiety [None]
  - Product substitution issue [None]
  - Frustration tolerance decreased [None]
  - Incorrect route of product administration [None]
  - Somnolence [None]
  - Drug ineffective [None]

NARRATIVE: CASE EVENT DATE: 20210205
